FAERS Safety Report 4395147-2 (Version None)
Quarter: 2004Q3

REPORT INFORMATION
  Report Type: 
  Country: None (occurrence: None)
  Receive Date: 20040706
  Receipt Date: 20040622
  Transmission Date: 20050211
  Serious: Yes (Life-Threatening, Other)
  Sender: FDA-Public Use
  Company Number: 2004220478AT

PATIENT
  Age: 3 Year
  Sex: Female
  Weight: 15 kg

DRUGS (8)
  1. SOLU-MEDROL [Suspect]
     Indication: GLOMERULONEPHRITIS
     Dosage: 30 MG/M2, QD, EVERY OTHER, IV
     Route: 042
     Dates: start: 20040609, end: 20040613
  2. NORVASC [Concomitant]
  3. ROCEPHIN [Concomitant]
  4. FEDIP [Concomitant]
  5. LASIX [Concomitant]
  6. FRISIUM (CLOBAZAM) [Concomitant]
  7. PREDNISOLONE [Concomitant]
  8. DEBAX [Concomitant]

REACTIONS (4)
  - CONVULSION [None]
  - FATIGUE [None]
  - INFECTION IN AN IMMUNOCOMPROMISED HOST [None]
  - PNEUMONIA [None]
